FAERS Safety Report 8448180-5 (Version None)
Quarter: 2012Q2

REPORT INFORMATION
  Report Type: 
  Country: None (occurrence: None)
  Receive Date: 20120619
  Receipt Date: 20120606
  Transmission Date: 20120825
  Serious: No
  Sender: FDA-Public Use
  Company Number: US-ASTRAZENECA-2012SE38176

PATIENT
  Age: 69 Year
  Sex: Female

DRUGS (11)
  1. LEVOTHYROXINE SODIUM [Concomitant]
     Indication: THYROID DISORDER
  2. ORGANIC LIFE VITAMIN LIQUID [Concomitant]
     Dosage: QD
  3. EXTRA STRENGTH (MEGA RED OMEGA 3) [Concomitant]
  4. LISINOPRIL [Suspect]
     Indication: BLOOD PRESSURE
     Route: 048
  5. DYRENIUM [Concomitant]
     Indication: DIABETES MELLITUS
  6. ASPIRIN [Concomitant]
     Indication: CHEST PAIN
  7. LORATADINE NON DROWSY [Concomitant]
     Indication: HYPERSENSITIVITY
  8. LEVOTHYROXINE SODIUM [Concomitant]
     Indication: THYROID DISORDER
  9. METFORMIN HCL [Concomitant]
  10. DILTIAZEM HYDROCHOLORIDE [Concomitant]
  11. ATENOLOL [Suspect]
     Indication: HEART RATE INCREASED
     Route: 048

REACTIONS (8)
  - HEART RATE IRREGULAR [None]
  - COSTOCHONDRITIS [None]
  - MUSCULAR WEAKNESS [None]
  - OFF LABEL USE [None]
  - MUSCLE SWELLING [None]
  - HOUSE DUST ALLERGY [None]
  - INFECTION [None]
  - SWELLING FACE [None]
